FAERS Safety Report 10072700 (Version 3)
Quarter: 2014Q2

REPORT INFORMATION
  Report Type: Spontaneous
  Country: US (occurrence: US)
  Receive Date: 20140411
  Receipt Date: 20140519
  Transmission Date: 20141212
  Serious: No
  Sender: FDA-Public Use
  Company Number: US-PFIZER INC-2014100163

PATIENT
  Age: 61 Year
  Sex: Female
  Weight: 131.51 kg

DRUGS (12)
  1. LYRICA [Suspect]
     Indication: RHEUMATOID ARTHRITIS
     Dosage: 150 MG, 3X/DAY
     Route: 048
  2. LYRICA [Suspect]
     Dosage: 150 MG, 2X/DAY
     Route: 048
  3. LYRICA [Suspect]
     Dosage: 150 MG, 1X/DAY
     Route: 048
     Dates: end: 201402
  4. CYMBALTA [Concomitant]
     Indication: NERVE INJURY
     Dosage: 50 MG, UNK
  5. SYNTHROID [Concomitant]
     Dosage: UNK
  6. THYROXINE [Concomitant]
     Dosage: UNK, 1X/DAY
  7. FOLIC ACID [Concomitant]
     Dosage: 1 MG, 2X/DAY
  8. VITAMIN D [Concomitant]
     Dosage: 50000 UNIT, WEEKLY
  9. ATENOLOL [Concomitant]
     Dosage: 25 MG, UNK
  10. PREDNISONE [Concomitant]
     Dosage: 5 MG, 1X/DAY
  11. CRESTOR [Concomitant]
     Dosage: 10 MG, 1X/DAY
  12. METHOTREXATE [Concomitant]
     Dosage: 2.5 MG, WEEKLY

REACTIONS (4)
  - Pain [Recovered/Resolved]
  - Musculoskeletal discomfort [Recovered/Resolved]
  - Burning sensation [Recovered/Resolved]
  - Fibromyalgia [Recovered/Resolved]
